FAERS Safety Report 23507260 (Version 2)
Quarter: 2024Q1

REPORT INFORMATION
  Report Type: Report from Study
  Country: US (occurrence: US)
  Receive Date: 20240209
  Receipt Date: 20240228
  Transmission Date: 20240410
  Serious: Yes (Hospitalization, Other)
  Sender: FDA-Public Use
  Company Number: US-ABBVIE-5595398

PATIENT
  Sex: Female
  Weight: 116.11 kg

DRUGS (18)
  1. HUMIRA [Suspect]
     Active Substance: ADALIMUMAB
     Indication: Product used for unknown indication
     Route: 058
     Dates: start: 20140512
  2. HUMIRA [Suspect]
     Active Substance: ADALIMUMAB
  3. LYRICA [Concomitant]
     Active Substance: PREGABALIN
     Indication: Fibromyalgia
     Dosage: TIME INTERVAL: 0.33333333 DAYS
     Route: 048
     Dates: start: 20230711
  4. CYMBALTA [Concomitant]
     Active Substance: DULOXETINE HYDROCHLORIDE
     Indication: Depression
     Route: 048
  5. CALCIUM CITRATE [Concomitant]
     Active Substance: CALCIUM CITRATE
     Indication: Supplementation therapy
     Dosage: TIME INTERVAL: 0.33333333 DAYS
     Route: 048
     Dates: start: 2014
  6. AMLODIPINE [Concomitant]
     Active Substance: AMLODIPINE BESYLATE
     Indication: Hypertension
     Route: 048
     Dates: start: 20240106
  7. METHOTREXATE [Concomitant]
     Active Substance: METHOTREXATE
     Indication: Psoriatic arthropathy
     Dosage: 25MG/ML  0.8ML INJECTION
     Route: 058
     Dates: start: 2009
  8. FOLIC ACID [Concomitant]
     Active Substance: FOLIC ACID
     Indication: Psoriatic arthropathy
     Dosage: FORM STRENGTH: 1 MILLIGRAM
     Route: 048
     Dates: start: 2009
  9. LEVOFLOXACIN [Concomitant]
     Active Substance: LEVOFLOXACIN
     Indication: Sinusitis
     Route: 048
     Dates: start: 20240215, end: 20240225
  10. FAMOTIDINE [Concomitant]
     Active Substance: FAMOTIDINE
     Indication: Gastrooesophageal reflux disease
     Route: 048
     Dates: start: 20240215
  11. ALENDRONATE SODIUM [Concomitant]
     Active Substance: ALENDRONATE SODIUM
     Indication: Osteopenia
     Route: 048
     Dates: start: 2023
  12. LOSARTAN [Concomitant]
     Active Substance: LOSARTAN
     Indication: Hypertension
     Route: 048
     Dates: start: 20230808
  13. VITAMIN D3 [Concomitant]
     Active Substance: CHOLECALCIFEROL
     Indication: Hypovitaminosis
     Dosage: 5000 IU GEL CAPSULE? FORM STRENGTH: 5000 UNIT
  14. ACETAMINOPHEN [Concomitant]
     Active Substance: ACETAMINOPHEN
     Indication: Pain
     Route: 048
     Dates: start: 2014
  15. MAGNESIUM [Concomitant]
     Active Substance: MAGNESIUM
     Indication: Fibromyalgia
     Route: 048
     Dates: start: 2023
  16. CEFDINIR [Concomitant]
     Active Substance: CEFDINIR
     Indication: Streptococcal infection
     Dates: start: 20231215, end: 20231225
  17. VITAMIN C [Concomitant]
     Active Substance: ASCORBIC ACID
     Indication: Fibromyalgia
     Dates: start: 2023
  18. FISH OIL [Concomitant]
     Active Substance: FISH OIL
     Indication: Fibromyalgia
     Route: 048
     Dates: start: 2023

REACTIONS (21)
  - Gastric bypass [Unknown]
  - Weight increased [Unknown]
  - Chronic sinusitis [Unknown]
  - Pharyngitis streptococcal [Recovering/Resolving]
  - Weight decreased [Unknown]
  - Sinusitis [Recovering/Resolving]
  - Reflux laryngitis [Unknown]
  - COVID-19 [Unknown]
  - Depression [Unknown]
  - Anxiety [Unknown]
  - General physical health deterioration [Unknown]
  - Loss of personal independence in daily activities [Unknown]
  - Asthenia [Unknown]
  - Unevaluable event [Unknown]
  - Herpes zoster [Unknown]
  - Gastrooesophageal reflux disease [Unknown]
  - Fibromyalgia [Unknown]
  - Osteopenia [Unknown]
  - Ear discomfort [Unknown]
  - Infection [Recovering/Resolving]
  - Hypertension [Not Recovered/Not Resolved]

NARRATIVE: CASE EVENT DATE: 20140101
